FAERS Safety Report 4733465-6 (Version None)
Quarter: 2005Q3

REPORT INFORMATION
  Report Type: 
  Country: None (occurrence: None)
  Receive Date: 20050801
  Receipt Date: 20050801
  Transmission Date: 20060218
  Serious: Yes (Hospitalization)
  Sender: FDA-Public Use
  Company Number: None

PATIENT
  Age: 60 Year
  Sex: Male

DRUGS (9)
  1. FENTANYL [Suspect]
     Indication: PAIN
     Dosage: 50 MG Q72H
     Dates: start: 20010801
  2. LORAZEPAM [Suspect]
     Indication: ANXIETY
     Dosage: 2 MG TID
     Dates: start: 19980201
  3. HYDROCODONE [Suspect]
     Indication: PAIN
     Dosage: 5MG  Q8H
     Dates: start: 20041001
  4. HYDROXYZINE [Concomitant]
  5. GUAIFENESIN [Concomitant]
  6. GATIFLOXACIN [Concomitant]
  7. LACTULOSE [Concomitant]
  8. OMEPRAZOLE [Concomitant]
  9. SEVELAMER [Concomitant]

REACTIONS (1)
  - MENTAL STATUS CHANGES [None]
